FAERS Safety Report 4520206-0 (Version None)
Quarter: 2004Q4

REPORT INFORMATION
  Report Type: 
  Country: None (occurrence: None)
  Receive Date: 20041202
  Receipt Date: 20041202
  Transmission Date: 20050328
  Serious: Yes (Hospitalization)
  Sender: FDA-Public Use
  Company Number: None

PATIENT
  Age: 79 Year
  Sex: Male
  Weight: 51 kg

DRUGS (6)
  1. DIPHENHYDRAMINE HCL [Suspect]
     Indication: CHEMOTHERAPY
     Dosage: 50  MG X 1 INTRAVENOUS
     Route: 042
     Dates: start: 20041122, end: 20041122
  2. DIPHENHYDRAMINE HCL [Suspect]
     Indication: PREMEDICATION
     Dosage: 50  MG X 1 INTRAVENOUS
     Route: 042
     Dates: start: 20041122, end: 20041122
  3. LORAZEPAM [Suspect]
     Indication: CHEMOTHERAPY
     Dosage: .25 MG  X 1 INTRAVENOUS
     Route: 042
     Dates: start: 20041122, end: 20041122
  4. LORAZEPAM [Suspect]
     Indication: PREMEDICATION
     Dosage: .25 MG  X 1 INTRAVENOUS
     Route: 042
     Dates: start: 20041122, end: 20041122
  5. TAXOL [Concomitant]
  6. ANAPHYLACTIC RXN [Concomitant]

REACTIONS (6)
  - ANAPHYLACTIC REACTION [None]
  - BLOOD PRESSURE SYSTOLIC INCREASED [None]
  - CEREBROVASCULAR ACCIDENT [None]
  - DEPRESSED LEVEL OF CONSCIOUSNESS [None]
  - MENTAL STATUS CHANGES [None]
  - OVERDOSE [None]
